FAERS Safety Report 12666373 (Version 2)
Quarter: 2016Q3

REPORT INFORMATION
  Report Type: Report from Study
  Country: JP (occurrence: JP)
  Receive Date: 20160818
  Receipt Date: 20160824
  Transmission Date: 20161109
  Serious: Yes (Hospitalization)
  Sender: FDA-Public Use
  Company Number: JP-ASTRAZENECA-2016SE88452

PATIENT
  Age: 82 Year
  Sex: Female
  Weight: 43.2 kg

DRUGS (13)
  1. FULVESTRANT [Suspect]
     Active Substance: FULVESTRANT
     Indication: TUBULAR BREAST CARCINOMA
     Dosage: 500 MG DAY1,15/ 28 DAYS CYCLE, 250 MG TWO INJECTION/ A TIME
     Route: 030
     Dates: start: 20150812
  2. RANMARK [Concomitant]
     Active Substance: DENOSUMAB
     Dates: start: 20150713
  3. MIGSIS [Concomitant]
     Active Substance: LOMERIZINE HYDROCHLORIDE
     Dates: start: 20120508
  4. REBAMIPIDE [Concomitant]
     Active Substance: REBAMIPIDE
     Dates: start: 20150527
  5. VOLTAREN [Concomitant]
     Active Substance: DICLOFENAC SODIUM
     Dates: start: 20150730
  6. PLAVIX [Concomitant]
     Active Substance: CLOPIDOGREL BISULFATE
     Dates: start: 20120403
  7. KARY UNI [Concomitant]
     Active Substance: PIRENOXINE
  8. ABEMACICLIB CODE NOT BROKEN [Suspect]
     Active Substance: ABEMACICLIB
     Indication: TUBULAR BREAST CARCINOMA
     Dosage: DAY 1-28/ EVERY 12 HOURS
     Route: 048
     Dates: start: 20150812
  9. FLUVASTATIN [Concomitant]
     Active Substance: FLUVASTATIN SODIUM
     Dates: start: 200504
  10. RENIVACE [Concomitant]
     Active Substance: ENALAPRIL
     Dates: start: 200203
  11. MAGLAX [Concomitant]
     Active Substance: MAGNESIUM OXIDE
     Dates: start: 200203
  12. LOXOPROFEN [Concomitant]
     Active Substance: LOXOPROFEN
     Dates: start: 20130417
  13. DENOTAS [Concomitant]
     Active Substance: CALCIUM CARBONATE\CHOLECALCIFEROL\MAGNESIUM CARBONATE
     Dates: start: 20150713

REACTIONS (1)
  - Muscular weakness [Not Recovered/Not Resolved]

NARRATIVE: CASE EVENT DATE: 20160805
